FAERS Safety Report 15907629 (Version 1)
Quarter: 2019Q1

REPORT INFORMATION
  Report Type: Spontaneous
  Country: US (occurrence: US)
  Receive Date: 20190204
  Receipt Date: 20190204
  Transmission Date: 20190417
  Serious: Yes (Hospitalization, Other)
  Sender: FDA-Public Use
  Company Number: US-SA-2019SA025560

PATIENT
  Age: 82 Year
  Sex: Female

DRUGS (1)
  1. LANTUS SOLOSTAR [Suspect]
     Active Substance: INSULIN GLARGINE
     Indication: TYPE 2 DIABETES MELLITUS
     Dosage: 23 U, HS
     Route: 065

REACTIONS (9)
  - Peripheral arterial occlusive disease [Unknown]
  - Hospitalisation [Unknown]
  - Blood glucose increased [Unknown]
  - Arthritis [Unknown]
  - Peripheral swelling [Unknown]
  - Blood glucose abnormal [Unknown]
  - Gait disturbance [Unknown]
  - Device operational issue [Unknown]
  - Underdose [Unknown]
